FAERS Safety Report 9550853 (Version 1)
Quarter: 2013Q3

REPORT INFORMATION
  Report Type: Spontaneous
  Country: US (occurrence: US)
  Receive Date: 20130924
  Receipt Date: 20130924
  Transmission Date: 20140515
  Serious: No
  Sender: FDA-Public Use
  Company Number: US-SANOFI-AVENTIS-2013SA059732

PATIENT
  Age: 64 Year
  Sex: Female

DRUGS (6)
  1. AUBAGIO [Suspect]
     Indication: MULTIPLE SCLEROSIS
     Route: 048
     Dates: start: 20130507
  2. FOSAMAX [Concomitant]
  3. NASAL SPRAY [Concomitant]
  4. VITAMIN D [Concomitant]
  5. METOPROLOL [Concomitant]
  6. CALCIUM [Concomitant]

REACTIONS (5)
  - Hypoaesthesia [Unknown]
  - Paraesthesia [Unknown]
  - Hepatic enzyme increased [Unknown]
  - Alopecia [Not Recovered/Not Resolved]
  - Drug dose omission [Unknown]
